FAERS Safety Report 5381084-3 (Version None)
Quarter: 2007Q3

REPORT INFORMATION
  Report Type: 
  Country: None (occurrence: None)
  Receive Date: 20070706
  Receipt Date: 20070625
  Transmission Date: 20080115
  Serious: Yes (Death, Life-Threatening)
  Sender: FDA-Public Use
  Company Number: JP-PFIZER INC-2007030361

PATIENT
  Sex: Male

DRUGS (4)
  1. LIPITOR [Suspect]
     Indication: HYPERLIPIDAEMIA
     Route: 048
     Dates: start: 20060901, end: 20070409
  2. TENORMIN [Concomitant]
     Indication: ANGINA PECTORIS
     Route: 048
     Dates: start: 20060901, end: 20070409
  3. COUGH AND COLD PREPARATIONS [Concomitant]
     Indication: NASOPHARYNGITIS
     Route: 048
  4. COUGH AND COLD PREPARATIONS [Concomitant]
     Route: 048

REACTIONS (2)
  - DEATH [None]
  - RHABDOMYOLYSIS [None]
